FAERS Safety Report 8288981-X (Version None)
Quarter: 2012Q2

REPORT INFORMATION
  Report Type: 
  Country: None (occurrence: None)
  Receive Date: 20120417
  Receipt Date: 20120410
  Transmission Date: 20120825
  Serious: Yes (Other)
  Sender: FDA-Public Use
  Company Number: US-BAYER-2011-116638

PATIENT
  Age: 21 Year
  Sex: Female
  Weight: 80.272 kg

DRUGS (13)
  1. DROSPIRENONE AND ETHINYL ESTRADIOL [Suspect]
     Indication: CONTRACEPTION
     Dosage: UNK
     Dates: start: 20080701, end: 20091001
  2. IBUPROFEN [Concomitant]
     Dosage: UNK
     Dates: start: 20090821
  3. DROSPIRENONE AND ETHINYL ESTRADIOL [Suspect]
     Indication: MENSTRUATION IRREGULAR
  4. YASMIN [Suspect]
     Indication: MENSTRUATION IRREGULAR
     Dosage: UNK
     Dates: start: 20080601
  5. YAZ [Suspect]
     Indication: CONTRACEPTION
     Dosage: UNK
     Dates: start: 20080501
  6. YAZ [Suspect]
     Indication: MENSTRUATION IRREGULAR
  7. ALBUTEROL [Concomitant]
     Indication: ASTHMA
     Dosage: UNK UNK, PRN
     Dates: start: 19930101
  8. SINGULAIR [Concomitant]
     Indication: ASTHMA
     Dosage: 10 MG, UNK
     Route: 048
     Dates: start: 19930101
  9. SUCRALFATE [Concomitant]
     Dosage: 1 G, UNK
     Dates: start: 20090821
  10. XYZAL [Concomitant]
     Indication: MULTIPLE ALLERGIES
     Dosage: 5 MG, UNK
     Dates: start: 19930101
  11. PREVACID [Concomitant]
     Indication: GASTROOESOPHAGEAL REFLUX DISEASE
     Dosage: 30 MG, UNK
     Dates: start: 20050101
  12. NAPROXEN (ALEVE) [Concomitant]
     Dosage: UNK
     Dates: start: 20090910
  13. YASMIN [Suspect]
     Indication: CONTRACEPTION
     Dosage: UNK
     Dates: start: 20080401

REACTIONS (5)
  - BILIARY DYSKINESIA [None]
  - ABDOMINAL PAIN [None]
  - GALLBLADDER INJURY [None]
  - PAIN [None]
  - NAUSEA [None]
